FAERS Safety Report 5769031-3 (Version None)
Quarter: 2008Q2

REPORT INFORMATION
  Report Type: 
  Country: None (occurrence: None)
  Receive Date: 20080610
  Receipt Date: 20080529
  Transmission Date: 20081010
  Serious: Yes (Hospitalization, Other)
  Sender: FDA-Public Use
  Company Number: 100#08#2008-02882

PATIENT
  Age: 71 Year
  Sex: Female

DRUGS (1)
  1. TAMOXIFEN CITRATE [Suspect]
     Indication: BREAST CANCER
     Dosage: 20 MG

REACTIONS (4)
  - ENDOMETRIAL CANCER STAGE I [None]
  - ENDOMETRIOSIS [None]
  - OVARIAN CYST [None]
  - OVARIAN EPITHELIAL CANCER STAGE I [None]
